FAERS Safety Report 21553871 (Version 1)
Quarter: 2022Q4

REPORT INFORMATION
  Report Type: Spontaneous
  Country: US (occurrence: US)
  Receive Date: 20221104
  Receipt Date: 20221104
  Transmission Date: 20230113
  Serious: Yes (Other)
  Sender: FDA-Public Use
  Company Number: US-BRISTOL-MYERS SQUIBB COMPANY-2022-131866

PATIENT
  Age: 36 Year
  Sex: Male
  Weight: 60.78 kg

DRUGS (17)
  1. NIVOLUMAB [Suspect]
     Active Substance: NIVOLUMAB
     Indication: Metastatic malignant melanoma
     Route: 065
     Dates: start: 20210610, end: 20211130
  2. NIVOLUMAB [Suspect]
     Active Substance: NIVOLUMAB
     Route: 065
  3. IPILIMUMAB [Suspect]
     Active Substance: IPILIMUMAB
     Indication: Metastatic malignant melanoma
     Route: 065
     Dates: start: 20210610, end: 20210920
  4. ADVIL [Concomitant]
     Active Substance: IBUPROFEN
     Indication: Cancer pain
     Dosage: FREQUENCY: PRN (AS NEEDED)?REASON FOR USE: PRE-EXISTING SIGN AND SYMPTOMS
     Route: 048
     Dates: start: 20190722
  5. ATIVAN [Concomitant]
     Active Substance: LORAZEPAM
     Indication: Anxiety
     Dosage: FREQUENCY: PRN
     Route: 048
     Dates: start: 20191223
  6. PRILOSEC [Concomitant]
     Active Substance: OMEPRAZOLE MAGNESIUM
     Indication: Prophylaxis
     Dosage: FREQUENCY: PRN
     Route: 048
     Dates: start: 20200413
  7. FENTANYL [Concomitant]
     Active Substance: FENTANYL
     Indication: Cancer pain
     Dosage: FREQUENCY: OTHER?PRE-EXISTING SIGN AND SYMPTOMS
     Route: 061
     Dates: start: 20210105
  8. REMERON [Concomitant]
     Active Substance: MIRTAZAPINE
     Indication: Depression
     Dosage: FREQUENCY: UNKNOWN?PREEXISTING SIGN AND SYMTOPMS
     Route: 048
     Dates: start: 20210111
  9. PROVIGIL [Concomitant]
     Active Substance: MODAFINIL
     Indication: Fatigue
     Dosage: FREQUENCY: PRN?PRE-EXISTING SIGN AND SYMPTOMS
     Route: 048
     Dates: start: 20210402
  10. ZOFRAN [Concomitant]
     Active Substance: ONDANSETRON HYDROCHLORIDE
     Indication: Nausea
     Dosage: FREQUENCY: PRN (AS NEEDED)?REASON FOR USE: PRE-EXISTING SIGN AND SYMPTOMS
     Route: 048
     Dates: start: 20210612
  11. NEURONTIN [Concomitant]
     Active Substance: GABAPENTIN
     Indication: Cancer pain
     Dosage: REASON FOR USE: PRE-EXISTING SIGN AND SYMPTOMS
     Route: 048
     Dates: start: 20210830
  12. PROTONIX [Concomitant]
     Active Substance: PANTOPRAZOLE SODIUM
     Indication: Prophylaxis
     Dosage: REASON FOR USE: PRE-EXISTING SIGN AND SYMPTOMS
     Route: 048
     Dates: start: 20211122
  13. RESTORIL [Concomitant]
     Active Substance: TEMAZEPAM
     Indication: Insomnia
     Dosage: FREQUENCY: PRN (AS NEEDED)?REASON FOR USE: PRE-EXISTING SIGN AND SYMPTOMS
     Route: 048
     Dates: start: 20220131
  14. PERCOCET [Concomitant]
     Active Substance: ACETAMINOPHEN\OXYCODONE HYDROCHLORIDE
     Indication: Cancer pain
     Dosage: DOSE: 10-325 MG, FREQUENCY: AS NEEDED (EVERY 4 HRS)?REASON FOR USE: PRE-EXISTING SIGN AND SYMPTOMS
     Route: 048
     Dates: start: 20220729
  15. Bactroban 2% Ointment [Concomitant]
     Indication: Malignant melanoma
     Dosage: REASON FOR USE: PRE-EXISTING SIGN AND SYMPTOMS
     Route: 061
     Dates: start: 20220613
  16. LIDOCAINE [Concomitant]
     Active Substance: LIDOCAINE
     Indication: Cancer pain
     Dosage: AS NEEDED
     Route: 061
     Dates: start: 20160516
  17. MOTRIN [Concomitant]
     Active Substance: IBUPROFEN
     Indication: Cancer pain
     Dosage: AS NEEDED
     Route: 048
     Dates: start: 20170330

REACTIONS (8)
  - Malignant neoplasm progression [Unknown]
  - Fatigue [Unknown]
  - Decreased appetite [Unknown]
  - Rash [Unknown]
  - Weight decreased [Unknown]
  - Bone pain [Unknown]
  - Immune-mediated thyroiditis [Unknown]
  - Hyperthyroidism [Unknown]

NARRATIVE: CASE EVENT DATE: 20210601
